FAERS Safety Report 23208443 (Version 3)
Quarter: 2024Q1

REPORT INFORMATION
  Report Type: Spontaneous
  Country: EG (occurrence: EG)
  Receive Date: 20231121
  Receipt Date: 20240306
  Transmission Date: 20240410
  Serious: Yes (Death, Other)
  Sender: FDA-Public Use
  Company Number: EG-SANDOZ-SDZ2023EG056390

PATIENT
  Age: 60 Year
  Sex: Female

DRUGS (2)
  1. CEFTRIAXONE [Suspect]
     Active Substance: CEFTRIAXONE\CEFTRIAXONE SODIUM
     Indication: Ear pain
     Dosage: 1 G
     Route: 030
  2. CEFTRIAXONE [Suspect]
     Active Substance: CEFTRIAXONE\CEFTRIAXONE SODIUM
     Indication: Sinus disorder

REACTIONS (3)
  - Anaphylactic reaction [Fatal]
  - Cardiac arrest [Fatal]
  - Hypersensitivity [Fatal]
